FAERS Safety Report 19183863 (Version 1)
Quarter: 2021Q2

REPORT INFORMATION
  Report Type: Spontaneous
  Country: NL (occurrence: NL)
  Receive Date: 20210427
  Receipt Date: 20210427
  Transmission Date: 20210717
  Serious: Yes (Other)
  Sender: FDA-Public Use
  Company Number: NL-TEVA-2021-NL-1903721

PATIENT
  Age: 84 Year
  Sex: Male
  Weight: 80 kg

DRUGS (7)
  1. MULTIVITAMINEN [Concomitant]
     Dosage: THERAPY START DATE ASKU, THERAPY END DATE ASKU
  2. COLECALCIFEROL / BRAND NAME NOT SPECIFIED [Concomitant]
     Active Substance: CHOLECALCIFEROL
     Dosage: 800 UNITS,THERAPY START DATE ASKU, THERAPY END DATE ASKU
  3. CLOPIDOGREL TABLET   75MG / BRAND NAME NOT SPECIFIED [Suspect]
     Active Substance: CLOPIDOGREL BISULFATE
     Dosage: THERAPY END DATE ASKU, 75 MG (MILLIGRAM)
     Dates: start: 2011
  4. ATORVASTATINE TABLET 10MG / BRAND NAME NOT SPECIFIED [Concomitant]
     Active Substance: ATORVASTATIN
     Dosage: THERAPY START DATE ASKU, THERAPY END DATE ASKU, 10 MG
  5. PANTOPRAZOL TABLET MSR 20MG / BRAND NAME NOT SPECIFIED [Concomitant]
     Active Substance: PANTOPRAZOLE
     Dosage: THERAPY START DATE ASKU, THERAPY END DATE ASKU, 20 MG
  6. CANDESARTAN TABLET  4MG / BRAND NAME NOT SPECIFIED [Concomitant]
     Dosage: THERAPY START DATE ASKU, THERAPY END DATE ASKU, 4 MG
  7. CITALOPRAM TABLET OMHULD 20MG / BRAND NAME NOT SPECIFIED [Concomitant]
     Active Substance: CITALOPRAM HYDROBROMIDE
     Dosage: THERAPY START DATE ASKU, THERAPY END DATE ASKU, 20 MG

REACTIONS (2)
  - Epistaxis [Recovered/Resolved]
  - Rectal haemorrhage [Recovered/Resolved]

NARRATIVE: CASE EVENT DATE: 20210205
